FAERS Safety Report 22089677 (Version 2)
Quarter: 2024Q3

REPORT INFORMATION
  Report Type: Report from Study
  Country: PH (occurrence: PH)
  Receive Date: 20230313
  Receipt Date: 20240914
  Transmission Date: 20241016
  Serious: Yes (Hospitalization, Other)
  Sender: TAKEDA
  Company Number: PH-TAKEDA-2023TUS024658

PATIENT
  Sex: Male

DRUGS (1)
  1. VEDOLIZUMAB [Suspect]
     Active Substance: VEDOLIZUMAB
     Indication: Crohn^s disease
     Dosage: 300 MILLIGRAM
     Route: 042
     Dates: start: 20230211

REACTIONS (3)
  - Abdominal abscess [Recovering/Resolving]
  - Sepsis [Recovering/Resolving]
  - Inappropriate schedule of product administration [Unknown]
